FAERS Safety Report 12798633 (Version 1)
Quarter: 2016Q3

REPORT INFORMATION
  Report Type: Spontaneous
  Country: CH (occurrence: CH)
  Receive Date: 20160930
  Receipt Date: 20160930
  Transmission Date: 20161109
  Serious: Yes (Other)
  Sender: FDA-Public Use
  Company Number: CH-009507513-1609CHE010664

PATIENT
  Age: 13 Year
  Sex: Female

DRUGS (1)
  1. ESMERON [Suspect]
     Active Substance: ROCURONIUM BROMIDE
     Indication: GENERAL ANAESTHESIA
     Route: 040
     Dates: start: 20160324, end: 20160324

REACTIONS (6)
  - Tachycardia [Recovered/Resolved]
  - Erythema [Recovered/Resolved]
  - Skin test positive [Recovered/Resolved]
  - Blood pressure decreased [Recovered/Resolved]
  - Type I hypersensitivity [Not Recovered/Not Resolved]
  - Anaphylactic reaction [Recovered/Resolved]

NARRATIVE: CASE EVENT DATE: 20160324
